FAERS Safety Report 20880329 (Version 4)
Quarter: 2023Q1

REPORT INFORMATION
  Report Type: Spontaneous
  Country: JP (occurrence: JP)
  Receive Date: 20220526
  Receipt Date: 20230309
  Transmission Date: 20230417
  Serious: Yes (Death, Other)
  Sender: FDA-Public Use
  Company Number: JP-ONO-2022JP014141

PATIENT

DRUGS (7)
  1. ONGENTYS [Suspect]
     Active Substance: OPICAPONE
     Indication: Parkinson^s disease
     Dosage: 25 MILLIGRAM, EVERYDAY
     Route: 048
     Dates: end: 20220421
  2. CARBIDOPA\LEVODOPA [Concomitant]
     Active Substance: CARBIDOPA\LEVODOPA
     Dosage: UNKNOWN
     Route: 065
     Dates: start: 20220127, end: 20220318
  3. AMANTADINE HYDROCHLORIDE [Concomitant]
     Active Substance: AMANTADINE HYDROCHLORIDE
     Dosage: UNKNOWN
     Route: 065
     Dates: start: 20220127, end: 20220318
  4. SPIRONOLACTONE [Concomitant]
     Active Substance: SPIRONOLACTONE
     Dosage: UNKNOWN
     Route: 065
     Dates: start: 20220127, end: 20220318
  5. MAGNESIUM OXIDE [Concomitant]
     Active Substance: MAGNESIUM OXIDE
     Dosage: UNKNOWN
     Route: 065
     Dates: start: 20220202, end: 20220318
  6. LANSOPRAZOLE [Concomitant]
     Active Substance: LANSOPRAZOLE
     Dosage: UNKNOWN
     Route: 048
     Dates: start: 20220324
  7. URSODIOL [Concomitant]
     Active Substance: URSODIOL
     Dosage: UNKNOWN
     Route: 065

REACTIONS (2)
  - Pneumonia aspiration [Fatal]
  - Vomiting [Unknown]

NARRATIVE: CASE EVENT DATE: 20220329
